FAERS Safety Report 16850466 (Version 1)
Quarter: 2019Q3

REPORT INFORMATION
  Report Type: Spontaneous
  Country: DK (occurrence: DK)
  Receive Date: 20190925
  Receipt Date: 20190925
  Transmission Date: 20191005
  Serious: Yes (Hospitalization, Other)
  Sender: FDA-Public Use
  Company Number: DK-PFIZER INC-2019405524

PATIENT
  Age: 67 Year
  Sex: Female

DRUGS (11)
  1. ALPRAZOLAM. [Suspect]
     Active Substance: ALPRAZOLAM
     Dosage: 1 MG, 1X/DAY (0,5 MG X 2 DAILY)
     Route: 048
  2. SYMBICORT [Interacting]
     Active Substance: BUDESONIDE\FORMOTEROL FUMARATE DIHYDRATE
     Dosage: UNK
  3. PRADAXA [Interacting]
     Active Substance: DABIGATRAN ETEXILATE MESYLATE
     Dosage: 300 MG, 1X/DAY (150 MG X 2 DAILY)
     Route: 048
  4. VITAMIN D [VITAMIN D NOS] [Interacting]
     Active Substance: VITAMIN D NOS
     Dosage: EVERY OTHER DAY
     Route: 048
  5. SIMVASTATIN. [Interacting]
     Active Substance: SIMVASTATIN
     Dosage: 40 MG, 1X/DAY
     Route: 048
  6. ISOPTIN [Interacting]
     Active Substance: VERAPAMIL HYDROCHLORIDE
     Dosage: UNK
     Route: 048
     Dates: start: 20171027
  7. ISOPTIN [Interacting]
     Active Substance: VERAPAMIL HYDROCHLORIDE
     Dosage: 480 MG, 1X/DAY (240 MG X 2 DAILY)
     Route: 048
  8. METOPROLOL TARTRATE. [Interacting]
     Active Substance: METOPROLOL TARTRATE
     Dosage: UNK
     Dates: start: 20171027
  9. METOPROLOL SUCCINATE. [Interacting]
     Active Substance: METOPROLOL SUCCINATE
     Dosage: 100 MG, 1X/DAY (50 MG X 2 DAILY)
     Route: 048
  10. ZOLPIDEM [Interacting]
     Active Substance: ZOLPIDEM TARTRATE
     Dosage: 10 MG, 1X/DAY (AT BEDTIME)
     Route: 048
  11. SIFROL [Interacting]
     Active Substance: PRAMIPEXOLE
     Dosage: 0.088 MG, DAILY
     Route: 048

REACTIONS (9)
  - Blood pressure abnormal [Unknown]
  - Dizziness [Unknown]
  - Atrial fibrillation [Unknown]
  - Nausea [Unknown]
  - Abdominal pain [Unknown]
  - Malaise [Unknown]
  - Tremor [Unknown]
  - Chest discomfort [Unknown]
  - Drug interaction [Unknown]
